FAERS Safety Report 7914800-4 (Version None)
Quarter: 2011Q4

REPORT INFORMATION
  Report Type: 
  Country: None (occurrence: None)
  Receive Date: 20111115
  Receipt Date: 20111111
  Transmission Date: 20120403
  Serious: Yes (Death, Hospitalization)
  Sender: FDA-Public Use
  Company Number: PHHY2011PA85331

PATIENT
  Age: 65 Year
  Sex: Male

DRUGS (3)
  1. PREDNISONE TAB [Suspect]
     Dosage: 0.5 DF, QD
     Route: 048
  2. PREDNISONE TAB [Suspect]
     Indication: ARTHRALGIA
     Dosage: 1 DF, QD
     Route: 048
  3. PREDNISONE TAB [Suspect]
     Dosage: 0.25 DF, QD
     Route: 048

REACTIONS (15)
  - TOXIC EPIDERMAL NECROLYSIS [None]
  - SKIN EXFOLIATION [None]
  - BLISTER [None]
  - PRURITUS GENERALISED [None]
  - HYPERTENSION [None]
  - SKIN ULCER [None]
  - MOUTH ULCERATION [None]
  - GENITAL ULCERATION [None]
  - DERMATITIS BULLOUS [None]
  - DEATH [None]
  - PYREXIA [None]
  - TACHYCARDIA [None]
  - SKIN LESION [None]
  - ERYTHEMA [None]
  - CONJUNCTIVAL ULCER [None]
